FAERS Safety Report 7106498-2 (Version None)
Quarter: 2010Q4

REPORT INFORMATION
  Report Type: 
  Country: None (occurrence: None)
  Receive Date: 20101116
  Receipt Date: 20101110
  Transmission Date: 20110411
  Serious: Yes (Other)
  Sender: FDA-Public Use
  Company Number: JP-ABBOTT-10P-087-0657438-00

PATIENT
  Sex: Female
  Weight: 51.8 kg

DRUGS (4)
  1. CLARITHROMYCIN [Suspect]
     Indication: HELICOBACTER INFECTION
     Route: 048
     Dates: start: 20100623, end: 20100630
  2. AMOXICILLIN TRIHYDRATE [Suspect]
     Indication: HELICOBACTER INFECTION
     Route: 048
     Dates: start: 20100623, end: 20100630
  3. PARIET [Suspect]
     Indication: HELICOBACTER INFECTION
     Route: 048
     Dates: start: 20100623, end: 20100630
  4. ACINON [Concomitant]
     Indication: PRODUCT USED FOR UNKNOWN INDICATION
     Route: 048
     Dates: start: 20100602, end: 20100702

REACTIONS (1)
  - ERYTHEMA MULTIFORME [None]
